FAERS Safety Report 9587187 (Version 2)
Quarter: 2014Q2

REPORT INFORMATION
  Report Type: Report from Study
  Country: DE (occurrence: DE)
  Receive Date: 20131003
  Receipt Date: 20140402
  Transmission Date: 20141212
  Serious: Yes (Hospitalization)
  Sender: FDA-Public Use
  Company Number: DE-ABBVIE-13P-062-1153264-00

PATIENT
  Age: 35 Year
  Sex: Male
  Weight: 105 kg

DRUGS (2)
  1. HUMIRA [Suspect]
     Indication: PSORIASIS
     Route: 058
     Dates: start: 20130506, end: 20130902
  2. AMLODIPIN [Concomitant]
     Indication: HYPERTENSION
     Route: 048

REACTIONS (1)
  - Intervertebral disc protrusion [Not Recovered/Not Resolved]
